FAERS Safety Report 5545668-1 (Version None)
Quarter: 2007Q4

REPORT INFORMATION
  Report Type: 
  Country: None (occurrence: None)
  Receive Date: 20071206
  Receipt Date: 20071115
  Transmission Date: 20080405
  Serious: Yes (Other)
  Sender: FDA-Public Use
  Company Number: CAP07000406

PATIENT
  Age: 86 Year
  Sex: Female

DRUGS (22)
  1. ACTONEL [Suspect]
     Indication: OSTEOPOROSIS
     Dosage: 35 MG ONCE WEEKLY, ORAL
     Route: 048
     Dates: start: 20050301
  2. ADVAIR (SALMETEROL XINAFOATE, FLUTICASONE PROPIONATE) [Concomitant]
  3. LIPITOR [Concomitant]
  4. DETROL [Concomitant]
  5. PARIET (RABEPRAZOLE SODIUM) TABLET [Concomitant]
  6. EFFEXOR [Concomitant]
  7. TRAZODONE HCL [Concomitant]
  8. DEPO-MEDROL (METHYLPREDNISOLONE ACETATE) INJECTION [Concomitant]
  9. SEPTRA (TRIMETHOPRIM, SULFAMETHOXAZOLE) TABLET [Concomitant]
  10. DILTIAZEM HYDROCHLORIDE (DILTIAZEM HYDROCHLORIDE) TABLET [Concomitant]
  11. COLACE (DOCUSATE SODIUM) CAPSULE [Concomitant]
  12. FLUVIRAL (INFLUENZA VIRUS VACCINE POLYVALENT) INJECTION [Concomitant]
  13. SYNTHROID (LEVOTHYROXINE SODIUM) TABLET [Concomitant]
  14. OXYBUTYNIN CHLORIDE (OXYBUTYNIN HYDROCHLORIDE) TABLET [Concomitant]
  15. ATROVENT (IPRATROPIUM BROMIDE) SPRAY [Concomitant]
  16. DETROL LA (TOLTERODINE L-TARTRATE) TABLET [Concomitant]
  17. PLAQUENIL (HYDROXYCHLOROQUINE) TABLET [Concomitant]
  18. PREDNISONE [Concomitant]
  19. CALCIUM CARBONATE W/VITAMIN D [Concomitant]
  20. RANITIDINE HYDROCHLORIDE [Concomitant]
  21. ACETYLSALICYLIC ACID SRT [Concomitant]
  22. NITROSPRAY (GLYCERYL TRINITRATE) [Concomitant]

REACTIONS (23)
  - ARTHRITIS [None]
  - ASTHENIA [None]
  - BLOOD CREATININE INCREASED [None]
  - CHOKING SENSATION [None]
  - DIARRHOEA [None]
  - DYSPHAGIA [None]
  - DYSPHONIA [None]
  - GLOMERULAR FILTRATION RATE INCREASED [None]
  - INNER EAR INFLAMMATION [None]
  - NASAL MUCOSA ATROPHY [None]
  - NON-SMALL CELL LUNG CANCER STAGE I [None]
  - OEDEMA PERIPHERAL [None]
  - ORAL CANDIDIASIS [None]
  - ORAL MUCOSA ATROPHY [None]
  - PAIN [None]
  - POSTNASAL DRIP [None]
  - RED CELL DISTRIBUTION WIDTH INCREASED [None]
  - REFLUX OESOPHAGITIS [None]
  - TONGUE DISORDER [None]
  - UPPER RESPIRATORY TRACT INFECTION [None]
  - URINE LEUKOCYTE ESTERASE POSITIVE [None]
  - VIRAL INFECTION [None]
  - VOMITING [None]
